FAERS Safety Report 8156148-1 (Version None)
Quarter: 2012Q1

REPORT INFORMATION
  Report Type: 
  Country: None (occurrence: None)
  Receive Date: 20120222
  Receipt Date: 20120214
  Transmission Date: 20120608
  Serious: Yes (Hospitalization)
  Sender: FDA-Public Use
  Company Number: FR-JNJFOC-20120208862

PATIENT
  Age: 29 Year
  Sex: Female

DRUGS (3)
  1. VOLTAREN [Suspect]
     Indication: TENDONITIS
     Route: 048
     Dates: start: 20120109, end: 20120111
  2. ARESTAL [Suspect]
     Indication: PRODUCT USED FOR UNKNOWN INDICATION
     Route: 048
     Dates: start: 20120109
  3. THIOCOLCHICOSIDE [Suspect]
     Indication: PRODUCT USED FOR UNKNOWN INDICATION
     Dosage: 3 PER DAY
     Route: 048
     Dates: start: 20120109

REACTIONS (4)
  - URTICARIA [None]
  - HYPOTENSION [None]
  - ANAPHYLACTIC SHOCK [None]
  - NAUSEA [None]
